FAERS Safety Report 15570695 (Version 4)
Quarter: 2019Q1

REPORT INFORMATION
  Report Type: Report from Study
  Country: US (occurrence: US)
  Receive Date: 20181031
  Receipt Date: 20190325
  Transmission Date: 20190417
  Serious: Yes (Hospitalization, Other)
  Sender: FDA-Public Use
  Company Number: US-BRISTOL-MYERS SQUIBB COMPANY-BMS-2018-100829

PATIENT
  Age: 58 Year
  Sex: Female
  Weight: 47.4 kg

DRUGS (8)
  1. NORCO [Concomitant]
     Active Substance: ACETAMINOPHEN\HYDROCODONE BITARTRATE
     Indication: CANCER PAIN
     Dosage: UNK
     Route: 065
     Dates: start: 20180607
  2. LEVOFLOXACIN. [Concomitant]
     Active Substance: LEVOFLOXACIN
     Indication: URINARY TRACT INFECTION
     Dosage: UNK
     Route: 065
     Dates: start: 20180911, end: 20180915
  3. ALEVE [Concomitant]
     Active Substance: NAPROXEN SODIUM
     Indication: PRODUCT USED FOR UNKNOWN INDICATION
     Dosage: UNK
     Route: 065
     Dates: start: 2016
  4. ATIVAN [Concomitant]
     Active Substance: LORAZEPAM
     Indication: ANXIETY
     Dosage: UNK
     Route: 065
     Dates: start: 20161004
  5. PEGILODECAKIN [Suspect]
     Active Substance: PEGILODECAKIN
     Indication: NON-SMALL CELL LUNG CANCER STAGE IV
     Dosage: 0.8 MG, QD
     Route: 058
     Dates: start: 20180830, end: 20180912
  6. INSULIN [Concomitant]
     Active Substance: INSULIN NOS
     Indication: TYPE 2 DIABETES MELLITUS
     Dosage: UNK
     Route: 065
     Dates: start: 2015
  7. NIVOLUMAB [Suspect]
     Active Substance: NIVOLUMAB
     Indication: NON-SMALL CELL LUNG CANCER STAGE IV
     Dosage: 240 MG, Q2WK
     Route: 042
     Dates: start: 20180328, end: 20180830
  8. ALBUTEROL                          /00139501/ [Concomitant]
     Active Substance: ALBUTEROL
     Indication: COUGH
     Dosage: UNK
     Route: 065
     Dates: start: 20180802

REACTIONS (5)
  - Pneumonitis [Unknown]
  - Hypoxia [Recovered/Resolved]
  - Leukopenia [Unknown]
  - Neutropenia [Unknown]
  - Malignant pleural effusion [Recovered/Resolved]

NARRATIVE: CASE EVENT DATE: 20180915
